FAERS Safety Report 18425188 (Version 2)
Quarter: 2020Q4

REPORT INFORMATION
  Report Type: Spontaneous
  Country: SE (occurrence: SE)
  Receive Date: 20201026
  Receipt Date: 20201026
  Transmission Date: 20210114
  Serious: Yes (Life-Threatening, Hospitalization, Disabling)
  Sender: FDA-Public Use
  Company Number: SE-ACCORD-206066

PATIENT
  Age: 53 Year
  Sex: Male

DRUGS (16)
  1. MIRTAZAPINE. [Suspect]
     Active Substance: MIRTAZAPINE
     Indication: POST-TRAUMATIC STRESS DISORDER
  2. OLANZAPINE. [Suspect]
     Active Substance: OLANZAPINE
     Indication: POST-TRAUMATIC STRESS DISORDER
  3. MIRTAZAPINE. [Suspect]
     Active Substance: MIRTAZAPINE
     Indication: SCHIZOAFFECTIVE DISORDER
     Dosage: 30 MG 1,5 TN
     Route: 048
     Dates: start: 2013, end: 20200926
  4. TROMBYL [Concomitant]
     Active Substance: ASPIRIN
     Dates: start: 2015, end: 20201002
  5. BUSPIRONE [Suspect]
     Active Substance: BUSPIRONE HYDROCHLORIDE
     Indication: SCHIZOAFFECTIVE DISORDER
     Dosage: 10 MG 3X2
     Route: 048
     Dates: start: 2017, end: 20200926
  6. NOZINAN [Suspect]
     Active Substance: LEVOMEPROMAZINE
     Indication: SCHIZOAFFECTIVE DISORDER
     Dosage: 25 MG 3 TN
     Route: 048
     Dates: start: 2018, end: 20200926
  7. MELATONIN [Concomitant]
     Active Substance: MELATONIN
     Dosage: 5 TN
     Dates: start: 2019, end: 20200926
  8. OLANZAPINE. [Suspect]
     Active Substance: OLANZAPINE
     Indication: SCHIZOAFFECTIVE DISORDER
     Dosage: 10 MG 3 TN
     Route: 048
     Dates: start: 2013, end: 20200926
  9. QUETIAPINE. [Suspect]
     Active Substance: QUETIAPINE
     Indication: POST-TRAUMATIC STRESS DISORDER
  10. ZOPICLONE [Concomitant]
     Active Substance: ZOPICLONE
     Dosage: 1 TN
     Dates: start: 2013, end: 20200926
  11. STESOLID [Concomitant]
     Active Substance: DIAZEPAM
     Dosage: TAKEN UP TO 6 PCS / DAY, STRENGTH: 5 MG
     Dates: start: 2014, end: 20200926
  12. QUETIAPINE. [Suspect]
     Active Substance: QUETIAPINE
     Indication: SCHIZOAFFECTIVE DISORDER
     Dosage: 25 MG 2-4 TN
     Route: 048
     Dates: start: 2019, end: 20200926
  13. NOZINAN [Suspect]
     Active Substance: LEVOMEPROMAZINE
     Indication: POST-TRAUMATIC STRESS DISORDER
     Dates: start: 2018
  14. PROPAVAN [Concomitant]
     Active Substance: PROPIOMAZINE
     Dosage: 2 TN, STRENGTH 25 MG
     Dates: start: 2017, end: 20200926
  15. ATORVASTATIN [Concomitant]
     Active Substance: ATORVASTATIN
     Dates: start: 2017, end: 20201002
  16. BUSPIRONE [Suspect]
     Active Substance: BUSPIRONE HYDROCHLORIDE
     Indication: POST-TRAUMATIC STRESS DISORDER

REACTIONS (3)
  - Cerebrovascular accident [Not Recovered/Not Resolved]
  - Electrocardiogram QT prolonged [Not Recovered/Not Resolved]
  - Accidental overdose [Unknown]

NARRATIVE: CASE EVENT DATE: 20200926
